FAERS Safety Report 6332284-7 (Version None)
Quarter: 2009Q3

REPORT INFORMATION
  Report Type: 
  Country: None (occurrence: None)
  Receive Date: 20090828
  Receipt Date: 20090817
  Transmission Date: 20100115
  Serious: Yes (Other)
  Sender: FDA-Public Use
  Company Number: US-PFIZER INC-2005091353

PATIENT
  Sex: Female
  Weight: 82 kg

DRUGS (9)
  1. PROVERA [Suspect]
     Indication: HORMONE REPLACEMENT THERAPY
     Route: 048
     Dates: start: 19980101, end: 20010601
  2. OGEN [Suspect]
     Indication: HORMONE REPLACEMENT THERAPY
     Route: 065
     Dates: start: 19980101, end: 20010601
  3. PREMPRO [Suspect]
     Indication: HORMONE REPLACEMENT THERAPY
     Dosage: 0.625MG/5MG
     Route: 065
     Dates: start: 19980901, end: 19990801
  4. ESTRATEST [Suspect]
     Indication: HORMONE REPLACEMENT THERAPY
     Dosage: UNK
     Route: 065
     Dates: start: 19990801, end: 20010601
  5. PROMETRIUM [Suspect]
     Indication: HORMONE REPLACEMENT THERAPY
     Dosage: 100 MG, UNK
     Route: 065
     Dates: start: 19990801, end: 20010601
  6. PROMETRIUM [Suspect]
     Indication: MENOPAUSAL SYMPTOMS
  7. FEMHRT [Suspect]
     Indication: HORMONE REPLACEMENT THERAPY
     Dosage: 1MG/5MG
     Route: 065
     Dates: start: 20000701, end: 20001001
  8. FEMHRT [Suspect]
     Indication: MENOPAUSAL SYMPTOMS
  9. SYNTHROID [Concomitant]
     Indication: HYPOTHYROIDISM
     Dosage: UNK
     Dates: start: 19950101

REACTIONS (1)
  - BREAST CANCER FEMALE [None]
